FAERS Safety Report 9789644 (Version 3)
Quarter: 2014Q2

REPORT INFORMATION
  Report Type: Report from Study
  Country: AU (occurrence: AU)
  Receive Date: 20131231
  Receipt Date: 20140423
  Transmission Date: 20141212
  Serious: Yes (Other)
  Sender: FDA-Public Use
  Company Number: AU-ASTRAZENECA-2013SE85028

PATIENT
  Age: 29156 Day
  Sex: Male

DRUGS (3)
  1. ZOLADEX [Suspect]
     Indication: PROSTATE CANCER
     Route: 058
     Dates: start: 20130630
  2. VESICARE [Concomitant]
     Indication: INCONTINENCE
  3. ANDROCUR [Concomitant]

REACTIONS (5)
  - Bone cancer [Unknown]
  - Incontinence [Not Recovered/Not Resolved]
  - Sexual dysfunction [Not Recovered/Not Resolved]
  - Erectile dysfunction [Not Recovered/Not Resolved]
  - Pollakiuria [Unknown]
